FAERS Safety Report 7198395-1 (Version None)
Quarter: 2010Q4

REPORT INFORMATION
  Report Type: 
  Country: None (occurrence: None)
  Receive Date: 20101227
  Receipt Date: 20101214
  Transmission Date: 20110411
  Serious: No
  Sender: FDA-Public Use
  Company Number: PHHY2010MX39522

PATIENT
  Age: 73 Year
  Sex: Female

DRUGS (3)
  1. DIOVAN HCT [Suspect]
     Indication: HYPERTENSION
     Dosage: 1 TABLET (160/12.5 MG) PER DAY
     Route: 048
     Dates: start: 20100519
  2. DIOVAN HCT [Suspect]
     Dosage: 160/12.5 MG (1 TABLET DAILY)
     Dates: start: 20100616
  3. DIOVAN HCT [Suspect]
     Dosage: 80/12.5 MG DAILY
     Dates: start: 20100517

REACTIONS (3)
  - BLOOD PRESSURE INCREASED [None]
  - EYE HAEMORRHAGE [None]
  - INCORRECT DOSE ADMINISTERED [None]
